FAERS Safety Report 4376455-8 (Version None)
Quarter: 2004Q2

REPORT INFORMATION
  Report Type: 
  Country: None (occurrence: None)
  Receive Date: 20040608
  Receipt Date: 20040528
  Transmission Date: 20050107
  Serious: Yes (Death)
  Sender: FDA-Public Use
  Company Number: 2004214938US

PATIENT
  Age: 56 Year
  Sex: Male
  Weight: 94.7 kg

DRUGS (11)
  1. CAMPTOSAR [Suspect]
     Indication: LEIOMYOSARCOMA METASTATIC
     Dosage: 125 MG/M2, CYCLIC IV
     Route: 042
     Dates: start: 20040504, end: 20040504
  2. CAMPTOSAR [Suspect]
     Indication: LEIOMYOSARCOMA METASTATIC
     Dosage: 125 MG/M2, CYCLIC IV
     Route: 042
     Dates: start: 20040511, end: 20040511
  3. GEM 231 (GEM 231) [Suspect]
     Indication: LEIOMYOSARCOMA METASTATIC
     Dosage: 40 MG/M2, FOR 5 DAYS/CYCLIC, IV
     Route: 042
     Dates: start: 20040504, end: 20040516
  4. COUMADIN [Concomitant]
  5. PREDNISONE [Concomitant]
  6. RANITIDINE [Concomitant]
  7. HYDROCORTISONE [Concomitant]
  8. ALBUTEROL [Concomitant]
  9. MORPHINE [Concomitant]
  10. PROMETHAZINE [Concomitant]
  11. IMODIUM [Concomitant]

REACTIONS (5)
  - CARDIOVASCULAR DISORDER [None]
  - CIRCULATORY COLLAPSE [None]
  - MYOCARDIAL INFARCTION [None]
  - PULMONARY EMBOLISM [None]
  - RESPIRATORY ARREST [None]
